FAERS Safety Report 20350469 (Version 1)
Quarter: 2022Q1

REPORT INFORMATION
  Report Type: Spontaneous
  Country: EE (occurrence: EE)
  Receive Date: 20220119
  Receipt Date: 20220119
  Transmission Date: 20220423
  Serious: Yes (Other)
  Sender: FDA-Public Use
  Company Number: EE-002147023-NVSC2021EE284233

PATIENT
  Age: 49 Year
  Sex: Male

DRUGS (3)
  1. DAUNORUBICIN HYDROCHLORIDE [Suspect]
     Active Substance: DAUNORUBICIN HYDROCHLORIDE
     Dosage: UNK
     Route: 065
  2. CYTARABINE [Suspect]
     Active Substance: CYTARABINE
     Dosage: UNK
     Route: 065
  3. RYDAPT [Suspect]
     Active Substance: MIDOSTAURIN
     Indication: Acute myeloid leukaemia
     Dosage: UNK
     Route: 065

REACTIONS (17)
  - Enterocolitis [Unknown]
  - Neoplasm recurrence [Unknown]
  - Bacteraemia [Unknown]
  - Hypokalaemia [Unknown]
  - Pneumonia [Unknown]
  - Febrile neutropenia [Unknown]
  - Ascites [Unknown]
  - Pleural effusion [Unknown]
  - Alanine aminotransferase increased [Unknown]
  - Aspartate aminotransferase increased [Unknown]
  - Urinary tract infection [Unknown]
  - Tachycardia [Unknown]
  - Hypoalbuminaemia [Unknown]
  - Back pain [Unknown]
  - Diarrhoea [Unknown]
  - Nausea [Unknown]
  - Headache [Unknown]
